FAERS Safety Report 6853051-1 (Version None)
Quarter: 2010Q3

REPORT INFORMATION
  Report Type: 
  Country: None (occurrence: None)
  Receive Date: 20100717
  Receipt Date: 20071128
  Transmission Date: 20110219
  Serious: No
  Sender: FDA-Public Use
  Company Number: US-PFIZER INC-2007102152

PATIENT
  Sex: Female
  Weight: 44.5 kg

DRUGS (3)
  1. CHANTIX [Suspect]
     Indication: SMOKING CESSATION THERAPY
     Route: 048
     Dates: start: 20071119, end: 20071124
  2. ALBUTEROL [Concomitant]
  3. ATROVENT [Concomitant]

REACTIONS (7)
  - DIARRHOEA [None]
  - MENTAL IMPAIRMENT [None]
  - NAUSEA [None]
  - NERVOUSNESS [None]
  - NIGHTMARE [None]
  - SLEEP DISORDER [None]
  - SPEECH DISORDER [None]
